FAERS Safety Report 9454854 (Version 1)
Quarter: 2013Q3

REPORT INFORMATION
  Report Type: Spontaneous
  Country: FR (occurrence: FR)
  Receive Date: 20130813
  Receipt Date: 20130813
  Transmission Date: 20140515
  Serious: Yes (Hospitalization)
  Sender: FDA-Public Use
  Company Number: FR-ROCHE-1258775

PATIENT
  Age: 72 Year
  Sex: Female

DRUGS (3)
  1. XELODA [Suspect]
     Indication: BREAST CANCER METASTATIC
     Route: 065
     Dates: start: 201010, end: 201107
  2. XELODA [Suspect]
     Route: 065
     Dates: start: 201205, end: 201306
  3. NOLVADEX [Suspect]
     Indication: BREAST CANCER METASTATIC
     Route: 065
     Dates: start: 1994, end: 1999

REACTIONS (5)
  - Rash erythematous [Recovered/Resolved]
  - Pyrexia [Recovered/Resolved]
  - Chills [Recovered/Resolved]
  - Inflammation [Recovered/Resolved]
  - Recall phenomenon [Recovered/Resolved]
